FAERS Safety Report 9695985 (Version 3)
Quarter: 2013Q4

REPORT INFORMATION
  Report Type: Spontaneous
  Country: DE (occurrence: DE)
  Receive Date: 20131119
  Receipt Date: 20131209
  Transmission Date: 20140711
  Serious: Yes (Other)
  Sender: FDA-Public Use
  Company Number: DE-BRISTOL-MYERS SQUIBB COMPANY-19414614

PATIENT
  Age: 80 Year
  Sex: Male

DRUGS (10)
  1. ELIQUIS [Suspect]
     Indication: ATRIAL FIBRILLATION
     Dosage: TABS?28AUG2013-04SEP2013;?10SEP2013-ONG
     Dates: start: 20130828
  2. ATACAND [Concomitant]
     Dosage: 8 MG (LX MIDDAY, 2XEVENINGS)
  3. SORTIS [Concomitant]
     Dosage: (LX EVENINGS)
  4. MAGNESIUM VERLA [Concomitant]
     Dosage: (LX MIDDAY)
  5. MEDYN [Concomitant]
     Dosage: FORTE?(LX MIDDAY)
  6. ALLOPURINOL [Concomitant]
     Dosage: (1/2 X MORNINGS)
  7. SPIRONOLACTONE [Concomitant]
     Dosage: (1/2X EVENINGS, EVERY SECOND DAY)
  8. PANTOZOL [Concomitant]
  9. CALCIUM-SANDOZ [Concomitant]
     Dosage: 500 EFFERVESCENT TABLET?(LX MORNINGS).
  10. TORASEMIDE [Concomitant]
     Dosage: (LX MORNINGS)

REACTIONS (2)
  - Cardiac failure [Recovered/Resolved]
  - Renal failure [Recovered/Resolved]
